FAERS Safety Report 16302424 (Version 2)
Quarter: 2019Q2

REPORT INFORMATION
  Report Type: Spontaneous
  Country: US (occurrence: US)
  Receive Date: 20190513
  Receipt Date: 20190618
  Transmission Date: 20190711
  Serious: No
  Sender: FDA-Public Use
  Company Number: US-CELGENEUS-USA-20190402346

PATIENT
  Sex: Female

DRUGS (2)
  1. REVLIMID [Suspect]
     Active Substance: LENALIDOMIDE
     Indication: PLASMA CELL MYELOMA
     Dosage: 5 MILLIGRAM
     Route: 048
     Dates: start: 201906
  2. REVLIMID [Suspect]
     Active Substance: LENALIDOMIDE
     Indication: HYPOTHYROIDISM
     Dosage: 10 MILLIGRAM
     Route: 048
     Dates: start: 20180604

REACTIONS (5)
  - Decreased appetite [Unknown]
  - Weight decreased [Unknown]
  - Electrocardiogram abnormal [Unknown]
  - Ageusia [Unknown]
  - Dyspnoea exertional [Unknown]
